FAERS Safety Report 9305726 (Version 5)
Quarter: 2013Q4

REPORT INFORMATION
  Report Type: Report from Study
  Country: CN (occurrence: CN)
  Receive Date: 20130523
  Receipt Date: 20131219
  Transmission Date: 20140711
  Serious: Yes (Death, Hospitalization)
  Sender: FDA-Public Use
  Company Number: CN-CELGENEUS-035-CCAZA-13043668

PATIENT
  Age: 61 Year
  Sex: Male
  Weight: 56 kg

DRUGS (29)
  1. AZACITIDINE INJECTABLE [Suspect]
     Indication: MYELODYSPLASTIC SYNDROME
     Dosage: 75 MILLIGRAM/SQ. METER
     Route: 058
     Dates: start: 20130315, end: 20130321
  2. AZACITIDINE INJECTABLE [Suspect]
     Dosage: 75 MILLIGRAM/SQ. METER
     Route: 065
     Dates: start: 20130415, end: 20130421
  3. MEROPENEM [Concomitant]
     Indication: LUNG INFECTION
     Dosage: 3 GRAM
     Route: 041
     Dates: start: 20130418
  4. FLUCONAZOLE [Concomitant]
     Indication: LUNG INFECTION
     Dosage: .4 GRAM
     Route: 041
     Dates: start: 20130417, end: 20130421
  5. VANCOMYCIN [Concomitant]
     Indication: LUNG INFECTION
     Dosage: 2 GRAM
     Route: 041
     Dates: start: 20130414, end: 20130418
  6. LINEZOLID [Concomitant]
     Indication: LUNG INFECTION
     Dosage: 1.2 GRAM
     Route: 041
     Dates: start: 20130418
  7. CASPOFUNGIN [Concomitant]
     Indication: LUNG INFECTION
     Dosage: 50 MILLIGRAM
     Route: 041
     Dates: start: 20130420
  8. ETAMSYLATE [Concomitant]
     Indication: PROPHYLAXIS
     Dosage: 1 GRAM
     Route: 041
     Dates: start: 20130315, end: 20130324
  9. ETAMSYLATE [Concomitant]
     Dosage: 2 GRAM
     Route: 041
     Dates: start: 20130331, end: 20130331
  10. ETAMSYLATE [Concomitant]
     Dosage: 1 GRAM
     Route: 041
     Dates: start: 20130402, end: 20130402
  11. ETAMSYLATE [Concomitant]
     Dosage: 1 GRAM
     Route: 041
     Dates: start: 20130407, end: 20130407
  12. ETAMSYLATE [Concomitant]
     Dosage: 2 GRAM
     Route: 041
     Dates: start: 20130409, end: 20130410
  13. ETAMSYLATE [Concomitant]
     Dosage: 2 GRAM
     Route: 041
     Dates: start: 20130412, end: 20130413
  14. ETAMSYLATE [Concomitant]
     Dosage: 1 GRAM
     Route: 041
     Dates: start: 20130414, end: 20130515
  15. ONDANSETRON HYDROCHLORIDE [Concomitant]
     Indication: PROPHYLAXIS
     Dosage: 8 MILLIGRAM
     Route: 041
     Dates: start: 20130315, end: 20130321
  16. ONDANSETRON HYDROCHLORIDE [Concomitant]
     Dosage: 4 MILLIGRAM
     Route: 041
     Dates: start: 20130415, end: 20130421
  17. LANSOPRAZOLE [Concomitant]
     Indication: GASTRITIS PROPHYLAXIS
     Dosage: 30 MILLIGRAM
     Route: 041
     Dates: start: 20130320, end: 20130324
  18. DEXAMETHASONE [Concomitant]
     Indication: PROPHYLAXIS
     Dosage: 2.5 MILLIGRAM
     Route: 041
     Dates: start: 20130324, end: 20130324
  19. ZHEN JU [Concomitant]
     Indication: HYPERTENSION
     Dosage: 3 DOSAGE FORMS
     Route: 048
  20. DIAMMONIUM GLYCYRRHIZINATE [Concomitant]
     Indication: PROPHYLAXIS
     Dosage: 150 MILLIGRAM
     Route: 041
     Dates: start: 20130422, end: 20130515
  21. OMEPRAZOLE SODIUM [Concomitant]
     Indication: GASTRITIS PROPHYLAXIS
     Dosage: 40 MILLIGRAM
     Route: 041
     Dates: start: 20130422, end: 20130515
  22. POTASSIUM CHLORIDE [Concomitant]
     Indication: HYPOKALAEMIA
     Dosage: 3 GRAM
     Route: 048
     Dates: start: 20130422, end: 20130514
  23. SPIRONOLACTONE [Concomitant]
     Indication: POLYURIA
     Dosage: 20 MILLIGRAM
     Route: 048
     Dates: start: 20130428, end: 20130428
  24. RED BLOOD CELLS [Concomitant]
     Indication: PRODUCT USED FOR UNKNOWN INDICATION
     Dosage: 2 IU (INTERNATIONAL UNIT)
     Route: 041
     Dates: start: 20130322, end: 20130322
  25. RED BLOOD CELLS [Concomitant]
     Dosage: 1 IU (INTERNATIONAL UNIT)
     Route: 041
     Dates: start: 20130418, end: 20130421
  26. RED BLOOD CELLS [Concomitant]
     Dosage: 1 IU (INTERNATIONAL UNIT)
     Route: 041
     Dates: start: 20130510, end: 20130510
  27. PLATELETS [Concomitant]
     Indication: PRODUCT USED FOR UNKNOWN INDICATION
     Dosage: 1 IU (INTERNATIONAL UNIT)
     Route: 041
     Dates: start: 20130322, end: 20130322
  28. PLATELETS [Concomitant]
     Dosage: 1 IU (INTERNATIONAL UNIT)
     Route: 041
     Dates: start: 20130416, end: 20130416
  29. PLATELETS [Concomitant]
     Dosage: 1 IU (INTERNATIONAL UNIT)
     Route: 041
     Dates: start: 20130512, end: 20130512

REACTIONS (1)
  - Cardiac failure acute [Fatal]
